FAERS Safety Report 4408708-9 (Version None)
Quarter: 2004Q3

REPORT INFORMATION
  Report Type: 
  Country: None (occurrence: None)
  Receive Date: 20040727
  Receipt Date: 20040715
  Transmission Date: 20050211
  Serious: Yes (Other)
  Sender: FDA-Public Use
  Company Number: US-ROCHE-374701

PATIENT
  Age: 50 Year
  Sex: Female

DRUGS (7)
  1. PEGASYS [Suspect]
     Indication: DRUG USE FOR UNKNOWN INDICATION
     Route: 065
  2. COPEGUS [Suspect]
     Indication: DRUG USE FOR UNKNOWN INDICATION
     Route: 065
  3. XANAX [Concomitant]
  4. HYDROCODONE [Concomitant]
  5. IBUPROFEN [Concomitant]
  6. EFFEXOR [Concomitant]
  7. BLOOD PRESSURE MEDICATIONS NOS [Concomitant]

REACTIONS (6)
  - CONVULSION [None]
  - MUSCLE TIGHTNESS [None]
  - SALIVA ALTERED [None]
  - STRESS SYMPTOMS [None]
  - TREMOR [None]
  - URINARY TRACT INFECTION [None]
